FAERS Safety Report 9941032 (Version 1)
Quarter: 2014Q1

REPORT INFORMATION
  Report Type: Spontaneous
  Country: BR (occurrence: BR)
  Receive Date: 20140303
  Receipt Date: 20140303
  Transmission Date: 20141002
  Serious: Yes (Other)
  Sender: FDA-Public Use
  Company Number: BR-SA-2014SA020720

PATIENT
  Sex: Male
  Weight: 70 kg

DRUGS (9)
  1. LANTUS [Suspect]
     Indication: TYPE 2 DIABETES MELLITUS
     Route: 065
     Dates: start: 2009
  2. LANTUS [Suspect]
     Indication: TYPE 2 DIABETES MELLITUS
     Route: 065
     Dates: start: 2012
  3. CLIKSTAR [Concomitant]
     Indication: DEVICE THERAPY
  4. ERYTHROPOIETIN [Concomitant]
     Indication: ANAEMIA
     Dates: start: 2012
  5. SOMALGIN [Concomitant]
     Indication: CARDIAC DISORDER
     Dosage: 200 MG STRENGTH
     Dates: start: 2012
  6. CARVEDILOL [Concomitant]
     Indication: CARDIAC DISORDER
     Dosage: 25 MG STRENGTH
     Dates: start: 2012
  7. LOSARTAN [Concomitant]
     Indication: BLOOD PRESSURE
     Dosage: 50 MG STRENGTH
  8. CITALOPRAM [Concomitant]
     Indication: DEPRESSION
     Dosage: 10 MG STRENGTH
     Dates: start: 2012
  9. OMEPRAZOLE [Concomitant]
     Indication: GASTRIC DISORDER
     Dosage: STRENGTH: 20 MG
     Dates: start: 2012

REACTIONS (10)
  - Cerebrovascular accident [Recovered/Resolved]
  - Amnesia [Recovered/Resolved]
  - Blindness [Not Recovered/Not Resolved]
  - Renal disorder [Recovering/Resolving]
  - Swelling [Recovering/Resolving]
  - Insomnia [Recovering/Resolving]
  - Hypertension [Not Recovered/Not Resolved]
  - Depression [Not Recovered/Not Resolved]
  - Headache [Not Recovered/Not Resolved]
  - Blood glucose decreased [Recovered/Resolved]
